FAERS Safety Report 16544085 (Version 3)
Quarter: 2019Q3

REPORT INFORMATION
  Report Type: Spontaneous
  Country: IT (occurrence: IT)
  Receive Date: 20190709
  Receipt Date: 20190723
  Transmission Date: 20191004
  Serious: Yes (Life-Threatening)
  Sender: FDA-Public Use
  Company Number: IT-AMREGENT-20191412

PATIENT
  Age: 17 Year
  Sex: Female
  Weight: 60 kg

DRUGS (1)
  1. FERINJECT [Suspect]
     Active Substance: FERRIC CARBOXYMALTOSE
     Dosage: 250ML PHYSIOLOGICAL SOL.1TOTAL
     Route: 041
     Dates: start: 20190618, end: 20190618

REACTIONS (11)
  - Nausea [Unknown]
  - Tongue oedema [Unknown]
  - Laryngeal oedema [Unknown]
  - Pruritus generalised [Unknown]
  - Angioedema [Unknown]
  - Eye oedema [Unknown]
  - Localised oedema [Unknown]
  - Oedema mouth [Unknown]
  - Flushing [Unknown]
  - Urticaria [Unknown]
  - Abdominal pain [Unknown]

NARRATIVE: CASE EVENT DATE: 20190618
